FAERS Safety Report 16894761 (Version 1)
Quarter: 2019Q4

REPORT INFORMATION
  Report Type: Spontaneous
  Country: US (occurrence: US)
  Receive Date: 20191007
  Receipt Date: 20191007
  Transmission Date: 20200122
  Serious: Yes (Hospitalization)
  Sender: FDA-Public Use
  Company Number: None

PATIENT
  Age: 11 Year
  Sex: Female

DRUGS (4)
  1. PULMOZYME [Concomitant]
     Active Substance: DORNASE ALFA
     Dates: start: 20180322
  2. KALYDECO [Suspect]
     Active Substance: IVACAFTOR
     Indication: CYSTIC FIBROSIS
     Route: 048
     Dates: start: 20170810
  3. SODIUM CHLORIDE 7% INHALATION SOLN [Concomitant]
     Dates: start: 20161011
  4. BUDESONIDE 0.5MG/2ML INH SOLN [Concomitant]
     Dates: start: 20190304

REACTIONS (1)
  - Pneumonia pseudomonal [None]

NARRATIVE: CASE EVENT DATE: 20191001
